FAERS Safety Report 22650219 (Version 1)
Quarter: 2023Q2

REPORT INFORMATION
  Report Type: Spontaneous
  Country: US (occurrence: US)
  Receive Date: 20230628
  Receipt Date: 20230628
  Transmission Date: 20230722
  Serious: Yes (Other)
  Sender: FDA-Public Use
  Company Number: US-BRISTOL-MYERS SQUIBB COMPANY-2023-090623

PATIENT
  Age: 84 Year
  Sex: Female
  Weight: 63.956 kg

DRUGS (1)
  1. REVLIMID [Suspect]
     Active Substance: LENALIDOMIDE
     Indication: Plasma cell myeloma
     Dosage: FREQUENCY: 21 D ON 7 D OFF
     Route: 048
     Dates: start: 20230101

REACTIONS (1)
  - Neuropathy peripheral [Not Recovered/Not Resolved]
